FAERS Safety Report 5677456-X (Version None)
Quarter: 2008Q1

REPORT INFORMATION
  Report Type: 
  Country: None (occurrence: None)
  Receive Date: 20080324
  Receipt Date: 20080312
  Transmission Date: 20080703
  Serious: Yes (Other)
  Sender: FDA-Public Use
  Company Number: FR-PFIZER INC-2008007436

PATIENT
  Sex: Female
  Weight: 58 kg

DRUGS (1)
  1. CHAMPIX [Suspect]

REACTIONS (4)
  - CONFUSIONAL STATE [None]
  - MEMORY IMPAIRMENT [None]
  - MIGRAINE WITH AURA [None]
  - MUSCULOSKELETAL CHEST PAIN [None]
